FAERS Safety Report 7215564-2 (Version None)
Quarter: 2011Q1

REPORT INFORMATION
  Report Type: 
  Country: None (occurrence: None)
  Receive Date: 20110107
  Receipt Date: 20110105
  Transmission Date: 20110831
  Serious: Yes (Hospitalization)
  Sender: FDA-Public Use
  Company Number: IT-ROCHE-750525

PATIENT
  Sex: Male

DRUGS (4)
  1. PEGASYS [Suspect]
     Indication: HEPATITIS C
     Route: 065
     Dates: start: 20101002, end: 20101227
  2. RIBAVARIN [Suspect]
     Indication: HEPATITIS C
     Dosage: FREQUENCY:DAILY
     Route: 048
     Dates: start: 20101002, end: 20101227
  3. PARACODINA [Concomitant]
  4. ACETAMINOPHEN [Concomitant]
     Route: 048

REACTIONS (3)
  - HAEMOPTYSIS [None]
  - PULMONARY HAEMORRHAGE [None]
  - COUGH [None]
